FAERS Safety Report 15546788 (Version 1)
Quarter: 2018Q4

REPORT INFORMATION
  Report Type: Spontaneous
  Country: US (occurrence: US)
  Receive Date: 20181024
  Receipt Date: 20181024
  Transmission Date: 20190205
  Serious: No
  Sender: FDA-Public Use
  Company Number: None

PATIENT
  Age: 45 Year
  Sex: Female
  Weight: 117.9 kg

DRUGS (14)
  1. MEGLIZINE [Concomitant]
  2. PAIN CREAM [Concomitant]
  3. EFFEXOR [Concomitant]
     Active Substance: VENLAFAXINE HYDROCHLORIDE
  4. ADDERALL [Concomitant]
     Active Substance: AMPHETAMINE ASPARTATE\AMPHETAMINE SULFATE\DEXTROAMPHETAMINE SACCHARATE\DEXTROAMPHETAMINE SULFATE
  5. ZOFRAN [Concomitant]
     Active Substance: ONDANSETRON HYDROCHLORIDE
  6. TIAZIDINE [Concomitant]
  7. CRESTOR [Concomitant]
     Active Substance: ROSUVASTATIN CALCIUM
  8. XANAX [Concomitant]
     Active Substance: ALPRAZOLAM
  9. CALAN [Concomitant]
     Active Substance: VERAPAMIL HYDROCHLORIDE
  10. PERCOIT [Concomitant]
  11. MAXALT [Concomitant]
     Active Substance: RIZATRIPTAN BENZOATE
  12. MUCINEX D [Concomitant]
     Active Substance: GUAIFENESIN\PSEUDOEPHEDRINE HYDROCHLORIDE
  13. AIMOVIG [Suspect]
     Active Substance: ERENUMAB-AOOE
     Indication: MIGRAINE
     Dosage: ?          QUANTITY:2 INJECTION(S);OTHER FREQUENCY:ONCE A MONTH;?
     Route: 030
     Dates: start: 20180918
  14. TEGRITOL [Concomitant]

REACTIONS (13)
  - Fatigue [None]
  - Eye pain [None]
  - Oral pain [None]
  - Facial pain [None]
  - Confusional state [None]
  - Gingival pain [None]
  - Toothache [None]
  - Feeling abnormal [None]
  - Back pain [None]
  - Ear pain [None]
  - Depression [None]
  - Depressed mood [None]
  - Gastrointestinal disorder [None]

NARRATIVE: CASE EVENT DATE: 20180927
